FAERS Safety Report 8573158-0 (Version None)
Quarter: 2012Q3

REPORT INFORMATION
  Report Type: 
  Country: None (occurrence: None)
  Receive Date: 20120806
  Receipt Date: 20120725
  Transmission Date: 20120928
  Serious: Yes (Hospitalization, Other)
  Sender: FDA-Public Use
  Company Number: US-BAYER-2011-034734

PATIENT
  Age: 43 Year
  Sex: Female
  Weight: 82 kg

DRUGS (23)
  1. TRAZODONE HYDROCHLORIDE [Concomitant]
     Indication: DEPRESSION
     Dosage: UNK
     Dates: start: 20060101, end: 20070101
  2. TRAZODONE HYDROCHLORIDE [Concomitant]
     Dosage: UNK
     Dates: start: 20090101
  3. IMITREX [Concomitant]
     Indication: MIGRAINE
     Dosage: UNK
     Dates: start: 20080101, end: 20090101
  4. KETOROLAC TROMETHAMINE [Concomitant]
     Dosage: UNK
     Dates: start: 20080101, end: 20100101
  5. NAPROXEN [Concomitant]
     Dosage: UNK
     Dates: start: 20080101, end: 20100101
  6. CELEBREX [Concomitant]
     Dosage: UNK
     Dates: start: 20080101, end: 20100101
  7. SIMVASTATIN [Concomitant]
     Dosage: UNK,  20 DAILY
     Dates: start: 20110316
  8. YAZ [Suspect]
     Indication: ACNE
     Dosage: UNK
     Dates: start: 20070910, end: 20110322
  9. YAZ [Suspect]
     Indication: CONTRACEPTION
  10. OXYCODONE HCL [Concomitant]
     Indication: PAIN
     Dosage: UNK
     Dates: start: 20080101, end: 20090101
  11. POTASSIUM CHLORIDE [Concomitant]
     Dosage: UNK
     Dates: start: 20070101, end: 20100101
  12. AMBIEN [Concomitant]
     Dosage: 10 MG, HS
     Dates: start: 20110316
  13. XANAX [Concomitant]
  14. YAZ [Suspect]
     Indication: PREMENSTRUAL SYNDROME
  15. LASIX [Concomitant]
     Indication: FLUID RETENTION
     Dosage: UNK
     Dates: start: 20080101, end: 20100101
  16. EFFEXOR [Concomitant]
     Indication: DEPRESSION
     Dosage: UNK
     Dates: start: 20080101, end: 20090101
  17. ZOLPIDEM [Concomitant]
     Indication: INSOMNIA
     Dosage: UNK
     Dates: start: 20070101, end: 20090101
  18. NEURONTIN [Concomitant]
     Dosage: 300 MG,3 TABLETS AT HS
     Dates: start: 20110322
  19. MULTI-VITAMIN [Concomitant]
     Dosage: UNK UNK, QD
     Dates: start: 20110322
  20. RELAFEN [Concomitant]
     Dosage: 500 MG, BID
     Dates: start: 20110322
  21. LIPITOR [Concomitant]
  22. LUNESTA [Concomitant]
     Dosage: UNK
     Dates: start: 20110316
  23. PROZAC [Concomitant]

REACTIONS (11)
  - PANCREATITIS [None]
  - DEEP VEIN THROMBOSIS [None]
  - ASTHENIA [None]
  - EMOTIONAL DISTRESS [None]
  - ANHEDONIA [None]
  - INJURY [None]
  - GENERAL PHYSICAL HEALTH DETERIORATION [None]
  - ANXIETY [None]
  - GALLBLADDER INJURY [None]
  - CHOLECYSTITIS CHRONIC [None]
  - PAIN [None]
